FAERS Safety Report 5000599-0 (Version None)
Quarter: 2006Q2

REPORT INFORMATION
  Report Type: 
  Country: None (occurrence: None)
  Receive Date: 20060501
  Receipt Date: 20060419
  Transmission Date: 20061013
  Serious: Yes (Hospitalization)
  Sender: FDA-Public Use
  Company Number: 2006042381

PATIENT
  Sex: Male
  Weight: 63.5036 kg

DRUGS (12)
  1. VIAGRA [Suspect]
     Indication: ERECTILE DYSFUNCTION
     Dosage: 100 MG AS NECESSARY, ORAL
     Route: 048
     Dates: start: 19980101
  2. TRIMIX (AMINO ACIDS NOS, FATS NOS, GLUCOSE) [Suspect]
     Indication: ERECTILE DYSFUNCTION
  3. LOTREL [Concomitant]
  4. AVANDIA [Concomitant]
  5. METFORMIN [Concomitant]
  6. LOPRESSOR [Concomitant]
  7. ASPIRIN [Concomitant]
  8. NIASPAN [Concomitant]
  9. FLOMAX  BOEHRINGER INGELHEIM (TAMSULOSIN) [Concomitant]
  10. LIPITOR [Concomitant]
  11. AVANDAMET [Concomitant]
  12. VESICARE [Concomitant]

REACTIONS (7)
  - CORONARY ARTERY OCCLUSION [None]
  - DRUG EFFECT DECREASED [None]
  - DRUG INEFFECTIVE [None]
  - EYE DISORDER [None]
  - INJECTION SITE BRUISING [None]
  - INJECTION SITE PAIN [None]
  - SEASONAL ALLERGY [None]
